FAERS Safety Report 4330991-9 (Version None)
Quarter: 2004Q1

REPORT INFORMATION
  Report Type: 
  Country: None (occurrence: None)
  Receive Date: 20040331
  Receipt Date: 20040318
  Transmission Date: 20041129
  Serious: Yes (Hospitalization)
  Sender: FDA-Public Use
  Company Number: US_031198580

PATIENT
  Age: 55 Year
  Sex: Male
  Weight: 136 kg

DRUGS (2)
  1. TADALAFIL [Suspect]
     Indication: ERECTILE DYSFUNCTION
     Dosage: 20 MG AS NEEDED
     Dates: start: 20030919
  2. PROTONIX [Concomitant]

REACTIONS (10)
  - ABDOMINAL DISCOMFORT [None]
  - ANAEMIA [None]
  - DIARRHOEA [None]
  - DIVERTICULITIS INTESTINAL HAEMORRHAGIC [None]
  - DIVERTICULUM [None]
  - DIZZINESS [None]
  - HAEMORRHOIDS [None]
  - HIATUS HERNIA [None]
  - LOWER GASTROINTESTINAL HAEMORRHAGE [None]
  - SENSORY DISTURBANCE [None]
